FAERS Safety Report 5795115-X (Version None)
Quarter: 2008Q2

REPORT INFORMATION
  Report Type: 
  Country: None (occurrence: None)
  Receive Date: 20080630
  Receipt Date: 20080415
  Transmission Date: 20081010
  Serious: No
  Sender: FDA-Public Use
  Company Number: US-BRISTOL-MYERS SQUIBB COMPANY-14153340

PATIENT
  Sex: Female

DRUGS (2)
  1. ORENCIA [Suspect]
  2. BENADRYL [Concomitant]

REACTIONS (1)
  - THROAT TIGHTNESS [None]
